FAERS Safety Report 18929688 (Version 8)
Quarter: 2021Q2

REPORT INFORMATION
  Report Type: Other
  Country: DE (occurrence: DE)
  Receive Date: 20210223
  Receipt Date: 20210630
  Transmission Date: 20210717
  Serious: Yes (Hospitalization, Other)
  Sender: FDA-Public Use
  Company Number: DE-ROCHE-2436141

PATIENT
  Age: 28 Year
  Sex: Female

DRUGS (15)
  1. L?THYROXIN [Concomitant]
     Active Substance: LEVOTHYROXINE SODIUM
  2. METOPROLOL. [Concomitant]
     Active Substance: METOPROLOL
  3. HCT [Concomitant]
     Active Substance: HYDROCHLOROTHIAZIDE
  4. L?THYROXIN [Concomitant]
     Active Substance: LEVOTHYROXINE SODIUM
  5. OCREVUS [Suspect]
     Active Substance: OCRELIZUMAB
     Route: 042
  6. HISTAKUT [Suspect]
     Active Substance: DIMETHINDENE MALEATE
     Indication: INFUSION RELATED REACTION
     Dosage: LAST DOSE OF HISTAKUT WAS GIVEN ON 28/OCT/2020
     Route: 042
     Dates: start: 20190903
  7. OCREVUS [Suspect]
     Active Substance: OCRELIZUMAB
     Route: 042
     Dates: start: 20201028
  8. PARACETAMOL [Suspect]
     Active Substance: ACETAMINOPHEN
     Indication: INFUSION RELATED REACTION
     Route: 042
     Dates: start: 20190903
  9. TILIDINE [Concomitant]
     Active Substance: TILIDINE
  10. FOLIC ACID. [Concomitant]
     Active Substance: FOLIC ACID
  11. PREDNISOLON [Suspect]
     Active Substance: PREDNISOLONE
     Indication: INFUSION RELATED REACTION
     Dosage: LAST DOSE OF PREDNISOLON WAS GIVEN ON 28/OCT/2020
     Route: 042
     Dates: start: 20190903
  12. OCREVUS [Suspect]
     Active Substance: OCRELIZUMAB
     Indication: RELAPSING-REMITTING MULTIPLE SCLEROSIS
     Route: 042
     Dates: start: 20190903
  13. PREGABALIN. [Concomitant]
     Active Substance: PREGABALIN
  14. BISOPROLOL [Concomitant]
     Active Substance: BISOPROLOL
     Dates: start: 2008
  15. VIGANTOLETTEN [Concomitant]
     Active Substance: CHOLECALCIFEROL
     Dates: start: 201906

REACTIONS (13)
  - Multiple sclerosis relapse [Recovered/Resolved]
  - Diarrhoea [Recovered/Resolved]
  - Hepatitis [Recovered/Resolved]
  - Haemorrhage in pregnancy [Recovered/Resolved]
  - Asthenia [Recovered/Resolved]
  - Throat irritation [Recovered/Resolved]
  - Abdominal pain [Recovered/Resolved]
  - Dizziness [Recovered/Resolved]
  - Fatigue [Recovered/Resolved]
  - Maternal exposure timing unspecified [Unknown]
  - Hepatic steatosis [Recovered/Resolved]
  - Headache [Recovered/Resolved]
  - Weight decreased [Unknown]

NARRATIVE: CASE EVENT DATE: 20190903
